FAERS Safety Report 8296490-7 (Version None)
Quarter: 2012Q2

REPORT INFORMATION
  Report Type: 
  Country: None (occurrence: None)
  Receive Date: 20120418
  Receipt Date: 20120412
  Transmission Date: 20120825
  Serious: Yes (Hospitalization)
  Sender: FDA-Public Use
  Company Number: JP-ALLERGAN-1205403US

PATIENT
  Age: 74 Year
  Sex: Male

DRUGS (1)
  1. BOTOX [Suspect]
     Indication: MUSCLE SPASMS
     Dosage: 250 UNITS, SINGLE
     Route: 030
     Dates: start: 20111219, end: 20111219

REACTIONS (1)
  - CEREBRAL INFARCTION [None]
